FAERS Safety Report 8495866-2 (Version None)
Quarter: 2012Q3

REPORT INFORMATION
  Report Type: 
  Country: None (occurrence: None)
  Receive Date: 20120709
  Receipt Date: 20120629
  Transmission Date: 20120928
  Serious: Yes (Other)
  Sender: FDA-Public Use
  Company Number: US-ROCHE-GNE296777

PATIENT
  Sex: Female

DRUGS (4)
  1. NORVASC [Concomitant]
     Indication: PRODUCT USED FOR UNKNOWN INDICATION
     Dates: start: 20030101
  2. RANIBIZUMAB [Suspect]
     Indication: AGE-RELATED MACULAR DEGENERATION
     Route: 042
     Dates: start: 20100106
  3. ASCORBIC ACID [Concomitant]
     Indication: PRODUCT USED FOR UNKNOWN INDICATION
  4. VITAMIN D [Concomitant]
     Indication: PRODUCT USED FOR UNKNOWN INDICATION

REACTIONS (7)
  - DEPRESSION [None]
  - INJECTION SITE PAIN [None]
  - HYPERTENSION [None]
  - EYE PAIN [None]
  - LACRIMATION INCREASED [None]
  - VISUAL IMPAIRMENT [None]
  - AGE-RELATED MACULAR DEGENERATION [None]
